FAERS Safety Report 6204330-2 (Version None)
Quarter: 2009Q2

REPORT INFORMATION
  Report Type: 
  Country: None (occurrence: None)
  Receive Date: 20090521
  Receipt Date: 20090514
  Transmission Date: 20091009
  Serious: Yes (Hospitalization)
  Sender: FDA-Public Use
  Company Number: A-CH2009-24193

PATIENT
  Age: 74 Year
  Sex: Male

DRUGS (5)
  1. TRACLEER [Suspect]
     Indication: PULMONARY HYPERTENSION
     Dosage: 62.5 MG, BID,  125 MG, BID, ORAL
     Route: 048
     Dates: start: 20090115
  2. TORSEMIDE [Concomitant]
  3. MARCUMAR [Concomitant]
  4. OXYGEN (OXYGEN) [Concomitant]
  5. SILDENAFIL CITRATE [Concomitant]

REACTIONS (9)
  - CONDITION AGGRAVATED [None]
  - DYSPNOEA [None]
  - IMPAIRED HEALING [None]
  - INFECTED SKIN ULCER [None]
  - OEDEMA PERIPHERAL [None]
  - OFF LABEL USE [None]
  - RIGHT VENTRICULAR FAILURE [None]
  - WEIGHT INCREASED [None]
  - WOUND INFECTION [None]
